FAERS Safety Report 14632237 (Version 1)
Quarter: 2018Q1

REPORT INFORMATION
  Report Type: Report from Study
  Country: US (occurrence: US)
  Receive Date: 20180313
  Receipt Date: 20180313
  Transmission Date: 20180509
  Serious: Yes (Death)
  Sender: FDA-Public Use
  Company Number: US-PFIZER INC-2018103893

PATIENT

DRUGS (2)
  1. CARBOPLATIN. [Suspect]
     Active Substance: CARBOPLATIN
     Indication: OVARIAN CANCER RECURRENT
     Dosage: AUC5, CYCLIC (DAY 8 OF 28-DAY CYCLES)
     Route: 042
  2. GUADECITABINE [Suspect]
     Active Substance: GUADECITABINE
     Indication: OVARIAN CANCER RECURRENT
     Dosage: 45 MG/M2, CYCLIC (ONCE DAILY ON DAYS 1-5)

REACTIONS (1)
  - Sepsis [Fatal]
